FAERS Safety Report 8822314 (Version 1)
Quarter: 2012Q4

REPORT INFORMATION
  Report Type: 
  Country: US (occurrence: US)
  Receive Date: 20121003
  Receipt Date: 20121003
  Transmission Date: 20130627
  Serious: Yes (Hospitalization)
  Sender: FDA-Public Use
  Company Number: US-BAYER-2012-101009

PATIENT
  Age: 37 Year
  Sex: Female
  Weight: 165.53 kg

DRUGS (9)
  1. YAZ [Suspect]
  2. YASMIN [Suspect]
  3. HYDROCHLOROTHIAZIDE [Concomitant]
     Dosage: UNK
  4. PREDNISONE [Concomitant]
     Dosage: UNK
     Dates: start: 20101129
  5. VENTOLIN HFA [Concomitant]
     Dosage: UNK
     Dates: start: 20101129
  6. DOXYCYCLINE HYCLATE [Concomitant]
     Dosage: UNK
     Dates: start: 20101203
  7. FUROSEMIDE [Concomitant]
     Dosage: UNK
     Dates: start: 20101203
  8. KLOR-CON M20 [Concomitant]
     Dosage: UNK
     Dates: start: 20101203
  9. AVELOX [Concomitant]
     Dosage: UNK
     Dates: start: 20101210

REACTIONS (1)
  - Pulmonary embolism [None]
